FAERS Safety Report 15928443 (Version 1)
Quarter: 2019Q1

REPORT INFORMATION
  Report Type: Spontaneous
  Country: US (occurrence: US)
  Receive Date: 20190206
  Receipt Date: 20190206
  Transmission Date: 20190417
  Serious: Yes (Hospitalization)
  Sender: FDA-Public Use
  Company Number: US-OTSUKA-2019_003237

PATIENT
  Sex: Male

DRUGS (3)
  1. ABILIFY [Suspect]
     Active Substance: ARIPIPRAZOLE
     Indication: POST-TRAUMATIC STRESS DISORDER
  2. ABILIFY [Suspect]
     Active Substance: ARIPIPRAZOLE
     Indication: MAJOR DEPRESSION
  3. ABILIFY [Suspect]
     Active Substance: ARIPIPRAZOLE
     Indication: BIPOLAR DISORDER
     Dosage: UNK
     Route: 065
     Dates: start: 2015, end: 2016

REACTIONS (8)
  - Gambling disorder [Recovered/Resolved]
  - Compulsive shopping [Recovered/Resolved]
  - Divorced [Unknown]
  - Loss of employment [Unknown]
  - Product use in unapproved indication [Unknown]
  - Mental disorder [Unknown]
  - Economic problem [Unknown]
  - Compulsive sexual behaviour [Recovered/Resolved]

NARRATIVE: CASE EVENT DATE: 2015
